FAERS Safety Report 4715624-1 (Version None)
Quarter: 2005Q3

REPORT INFORMATION
  Report Type: 
  Country: None (occurrence: None)
  Receive Date: 20050713
  Receipt Date: 20050616
  Transmission Date: 20060218
  Serious: Yes (Death, Hospitalization)
  Sender: FDA-Public Use
  Company Number: 2005-06-0904

PATIENT
  Age: 43 Year
  Sex: Male

DRUGS (3)
  1. VIRAFERONPEG [Suspect]
     Indication: HEPATITIS C
     Dosage: SUBCUTANEOUS
     Route: 058
     Dates: start: 20041101
  2. COPEGUS [Suspect]
     Indication: HEPATITIS C
     Dosage: ORAL
     Route: 048
     Dates: start: 20041101
  3. ANTIRETROVIRAL (NOS) [Concomitant]

REACTIONS (2)
  - NERVOUS SYSTEM DISORDER [None]
  - THROMBOTIC THROMBOCYTOPENIC PURPURA [None]
